FAERS Safety Report 22537795 (Version 1)
Quarter: 2023Q2

REPORT INFORMATION
  Report Type: Report from Study
  Country: CA (occurrence: CA)
  Receive Date: 20230608
  Receipt Date: 20230608
  Transmission Date: 20230722
  Serious: Yes (Other)
  Sender: FDA-Public Use
  Company Number: CA-002147023-NVSC2023CA127292

PATIENT
  Age: 40 Year
  Sex: Female

DRUGS (8)
  1. TACROLIMUS [Suspect]
     Active Substance: TACROLIMUS
     Indication: Asthma
     Dosage: 2 DOSAGE FORM, QD
     Route: 061
  2. MONTELUKAST [Suspect]
     Active Substance: MONTELUKAST SODIUM
     Indication: Product used for unknown indication
     Dosage: UNK
     Route: 065
  3. AMLODIPINE [Suspect]
     Active Substance: AMLODIPINE BESYLATE
     Indication: Product used for unknown indication
     Dosage: UNK
     Route: 065
  4. IRBESARTAN [Suspect]
     Active Substance: IRBESARTAN
     Indication: Product used for unknown indication
     Dosage: UNK
     Route: 065
  5. TRIAMCINOLONE ACETONIDE [Concomitant]
     Active Substance: TRIAMCINOLONE ACETONIDE
     Indication: Product used for unknown indication
     Dosage: 2 DOSAGE FORM, QD
     Route: 061
  6. CODEINE [Concomitant]
     Active Substance: CODEINE
     Indication: Product used for unknown indication
     Dosage: 1 DOSAGE FORM, QD
     Route: 048
  7. NYSTATIN [Concomitant]
     Active Substance: NYSTATIN
     Indication: Product used for unknown indication
     Dosage: 2 DOSAGE FORM, QD
     Route: 065
  8. DYMISTA [Concomitant]
     Active Substance: AZELASTINE HYDROCHLORIDE\FLUTICASONE PROPIONATE
     Indication: Product used for unknown indication
     Dosage: UNK
     Route: 065

REACTIONS (5)
  - Cushing^s syndrome [Unknown]
  - Seasonal allergy [Unknown]
  - Blood immunoglobulin E increased [Unknown]
  - Mean platelet volume decreased [Unknown]
  - Platelet count increased [Unknown]

NARRATIVE: CASE EVENT DATE: 20230401
